FAERS Safety Report 8459939-2 (Version None)
Quarter: 2012Q2

REPORT INFORMATION
  Report Type: 
  Country: None (occurrence: None)
  Receive Date: 20120622
  Receipt Date: 20120620
  Transmission Date: 20120825
  Serious: Yes (Death, Hospitalization, Other)
  Sender: FDA-Public Use
  Company Number: PHHY2011CA47309

PATIENT
  Sex: Female

DRUGS (3)
  1. AFINITOR [Suspect]
     Indication: CARCINOID TUMOUR
     Dosage: 10 MG, DAILY
     Route: 048
     Dates: start: 20110603, end: 20110612
  2. SANDOSTATIN LAR [Suspect]
     Indication: CARCINOID TUMOUR
     Dosage: 30 MG, EVERY 4 WEEKS
     Route: 030
     Dates: start: 20071130
  3. SANDOSTATIN LAR [Suspect]
     Dosage: 30 MG, TIW
     Route: 030
     Dates: end: 20120220

REACTIONS (8)
  - DEATH [None]
  - HAEMORRHOIDAL HAEMORRHAGE [None]
  - HEPATIC LESION [None]
  - PAIN [None]
  - MOUTH ULCERATION [None]
  - DIARRHOEA [None]
  - ABDOMINAL PAIN [None]
  - STRESS [None]
